FAERS Safety Report 6585593-0 (Version None)
Quarter: 2010Q1

REPORT INFORMATION
  Report Type: 
  Country: None (occurrence: None)
  Receive Date: 20100217
  Receipt Date: 20100208
  Transmission Date: 20100710
  Serious: Yes (Hospitalization)
  Sender: FDA-Public Use
  Company Number: TR-ELI_LILLY_AND_COMPANY-TR201002002565

PATIENT
  Sex: Male

DRUGS (3)
  1. HUMALOG MIX 75/25 [Suspect]
     Indication: DIABETES MELLITUS
     Dosage: 18 IU, EACH MORNING
     Route: 058
     Dates: start: 20091201
  2. HUMALOG MIX 75/25 [Suspect]
     Dosage: 18 IU, EACH EVENING
     Route: 058
     Dates: start: 20091201
  3. ANTIHYPERTENSIVES [Concomitant]
     Indication: HYPERTENSION
     Dosage: UNK, DAILY (1/D)

REACTIONS (2)
  - LUNG INFECTION [None]
  - PNEUMONIA [None]
